FAERS Safety Report 23181427 (Version 1)
Quarter: 2023Q4

REPORT INFORMATION
  Report Type: Spontaneous
  Country: SA (occurrence: SA)
  Receive Date: 20231114
  Receipt Date: 20231114
  Transmission Date: 20240110
  Serious: Yes (Death, Hospitalization, Other)
  Sender: FDA-Public Use
  Company Number: SA-AMGEN-SAUSP2023202786

PATIENT

DRUGS (1)
  1. TRASTUZUMAB [Suspect]
     Active Substance: TRASTUZUMAB
     Indication: Breast cancer
     Dosage: UNK
     Route: 065

REACTIONS (6)
  - Death [Fatal]
  - Cardiac arrest [Unknown]
  - Shock [Unknown]
  - Pericardial effusion [Unknown]
  - Cardiac dysfunction [Unknown]
  - Infection [Unknown]
